FAERS Safety Report 13584262 (Version 1)
Quarter: 2017Q2

REPORT INFORMATION
  Report Type: Spontaneous
  Country: US (occurrence: US)
  Receive Date: 20170525
  Receipt Date: 20170525
  Transmission Date: 20170830
  Serious: No
  Sender: FDA-Public Use
  Company Number: None

PATIENT
  Age: 66 Year
  Sex: Male

DRUGS (1)
  1. ENOXAPARIN SODIUM INJECTION, USP 60MG/0.6ML [Suspect]
     Active Substance: ENOXAPARIN SODIUM
     Indication: THROMBOSIS PROPHYLAXIS
     Dosage: ?          QUANTITY:1 INJECTION(S);?
     Route: 058
     Dates: start: 20170503, end: 20170510

REACTIONS (4)
  - Injection site haemorrhage [None]
  - Syringe issue [None]
  - Increased tendency to bruise [None]
  - Product quality issue [None]

NARRATIVE: CASE EVENT DATE: 20170508
